FAERS Safety Report 16237615 (Version 2)
Quarter: 2019Q2

REPORT INFORMATION
  Report Type: Spontaneous
  Country: US (occurrence: US)
  Receive Date: 20190425
  Receipt Date: 20190517
  Transmission Date: 20190711
  Serious: Yes (Other)
  Sender: FDA-Public Use
  Company Number: US-SPROUT PHARMACEUTICALS, INC.-2019SP000024

PATIENT
  Age: 68 Year
  Sex: Female
  Weight: 52.66 kg

DRUGS (3)
  1. LISINOPRIL. [Concomitant]
     Active Substance: LISINOPRIL
     Indication: BLOOD PRESSURE INCREASED
     Route: 048
  2. ASPIRIN. [Concomitant]
     Active Substance: ASPIRIN
     Indication: PRODUCT USED FOR UNKNOWN INDICATION
     Route: 048
  3. ADDYI [Suspect]
     Active Substance: FLIBANSERIN
     Indication: LIBIDO DECREASED
     Route: 048
     Dates: start: 201903, end: 20190409

REACTIONS (9)
  - Feeling abnormal [Recovered/Resolved]
  - Sleep deficit [Recovered/Resolved]
  - Flushing [Recovered/Resolved]
  - Dry mouth [Recovered/Resolved]
  - Blood pressure increased [Recovered/Resolved]
  - Nasal dryness [Recovered/Resolved]
  - Head discomfort [Recovered/Resolved]
  - Middle insomnia [Recovered/Resolved]
  - Product use in unapproved indication [Recovered/Resolved]

NARRATIVE: CASE EVENT DATE: 2019
